FAERS Safety Report 19913091 (Version 3)
Quarter: 2021Q4

REPORT INFORMATION
  Report Type: Spontaneous
  Country: JP (occurrence: JP)
  Receive Date: 20211004
  Receipt Date: 20211022
  Transmission Date: 20220303
  Serious: Yes (Hospitalization)
  Sender: FDA-Public Use
  Company Number: JP-ORGANON-O2110JPN000132

PATIENT
  Age: 73 Year
  Sex: Female

DRUGS (13)
  1. EZETIMIBE [Suspect]
     Active Substance: EZETIMIBE
     Indication: Dyslipidaemia
     Dosage: UNK
     Route: 048
  2. CLOPIDOGREL BISULFATE [Concomitant]
     Active Substance: CLOPIDOGREL BISULFATE
     Dosage: UNK
     Route: 065
  3. RIVASTIGMINE [Concomitant]
     Active Substance: RIVASTIGMINE
     Dosage: UNK
     Route: 065
  4. METFORMIN HYDROCHLORIDE [Concomitant]
     Active Substance: METFORMIN HYDROCHLORIDE
     Dosage: UNK
     Route: 065
  5. IPRAGLIFLOZIN L-PROLINE [Concomitant]
     Active Substance: IPRAGLIFLOZIN L-PROLINE
     Dosage: UNK
     Route: 065
  6. SITAGLIPTIN PHOSPHATE [Concomitant]
     Active Substance: SITAGLIPTIN PHOSPHATE
     Dosage: UNK, REPORTED AS ^SITAGLIPTIN PHOSPHATE HYDRATE^
     Route: 065
  7. GLIMEPIRIDE [Concomitant]
     Active Substance: GLIMEPIRIDE
     Dosage: UNK
     Route: 065
  8. AMLODIPINE BESYLATE [Concomitant]
     Active Substance: AMLODIPINE BESYLATE
     Dosage: UNK
     Route: 065
  9. VALSARTAN [Concomitant]
     Active Substance: VALSARTAN
     Dosage: UNK
     Route: 065
  10. ISOSORBIDE DINITRATE [Concomitant]
     Active Substance: ISOSORBIDE DINITRATE
     Dosage: UNK
     Route: 065
  11. ICOSAPENT ETHYL [Concomitant]
     Active Substance: ICOSAPENT ETHYL
     Dosage: UNK
     Route: 065
  12. METHYLCOBALAMIN [Concomitant]
     Active Substance: METHYLCOBALAMIN
     Dosage: UNK
     Route: 065
  13. EPALRESTAT [Concomitant]
     Active Substance: EPALRESTAT
     Dosage: UNK
     Route: 065

REACTIONS (1)
  - Hypercalcaemia [Recovered/Resolved]
